FAERS Safety Report 4319283-1 (Version None)
Quarter: 2004Q1

REPORT INFORMATION
  Report Type: 
  Country: None (occurrence: None)
  Receive Date: 20040316
  Receipt Date: 20040301
  Transmission Date: 20041129
  Serious: Yes (Other)
  Sender: FDA-Public Use
  Company Number: HQWYE604405MAR04

PATIENT
  Sex: Male

DRUGS (1)
  1. EFFEXOR [Suspect]
     Dosage: 150 MG
     Route: 048
     Dates: start: 20020301, end: 20020910

REACTIONS (4)
  - CARDIAC MURMUR [None]
  - FOETAL DISORDER [None]
  - FOETAL HEART RATE DISORDER [None]
  - MATERNAL DRUGS AFFECTING FOETUS [None]
